FAERS Safety Report 15386903 (Version 2)
Quarter: 2018Q3

REPORT INFORMATION
  Report Type: Spontaneous
  Country: FR (occurrence: FR)
  Receive Date: 20180914
  Receipt Date: 20180927
  Transmission Date: 20181010
  Serious: Yes (Hospitalization)
  Sender: FDA-Public Use
  Company Number: FR-TEVA-2018-FR-953768

PATIENT
  Age: 74 Year
  Sex: Male
  Weight: 90 kg

DRUGS (11)
  1. IMETH [Suspect]
     Active Substance: METHOTREXATE SODIUM
     Indication: PUSTULAR PSORIASIS
     Route: 048
     Dates: start: 2013, end: 20150318
  2. ATORVASTATIN CALCIUM. [Suspect]
     Active Substance: ATORVASTATIN CALCIUM
     Dosage: 80 MILLIGRAM DAILY;
     Route: 048
     Dates: start: 2010
  3. VALSARTAN. [Suspect]
     Active Substance: VALSARTAN
     Dosage: 80 MILLIGRAM DAILY;
     Route: 048
     Dates: start: 2014
  4. ESOMEPRAZOLE MAGNESIUM. [Suspect]
     Active Substance: ESOMEPRAZOLE MAGNESIUM
     Dosage: 40 MILLIGRAM DAILY;
     Route: 048
     Dates: start: 2010
  5. JANUVIA [Suspect]
     Active Substance: SITAGLIPTIN PHOSPHATE
     Dosage: 100 MILLIGRAM DAILY;
     Route: 048
     Dates: start: 201502, end: 20150318
  6. LASILIX [Suspect]
     Active Substance: FUROSEMIDE
     Dosage: 40 MILLIGRAM DAILY;
     Route: 048
     Dates: start: 2014
  7. METFORMIN HCL [Suspect]
     Active Substance: METFORMIN HYDROCHLORIDE
     Dosage: 1000 MILLIGRAM DAILY; 500 MG,  NON AZ DRUG
     Route: 048
     Dates: start: 201502, end: 20150318
  8. ISOPTINE L.P [Suspect]
     Active Substance: VERAPAMIL HYDROCHLORIDE
     Dosage: 240 MILLIGRAM DAILY; 1 PC/DAY
     Route: 048
     Dates: start: 2014, end: 20150319
  9. IBUPROFEN. [Suspect]
     Active Substance: IBUPROFEN
     Dosage: 1 CP: UNKNOWN DOSAGE
     Route: 048
     Dates: start: 20150313, end: 20150313
  10. KARDEGIC [Suspect]
     Active Substance: ASPIRIN DL-LYSINE
     Dosage: 75 MILLIGRAM DAILY; 1 SACHET/DAY
     Route: 048
     Dates: start: 2010
  11. SPECIAFOLDINE [Suspect]
     Active Substance: FOLIC ACID
     Dosage: 5 MG, 5 TIMES EVERY 7 DAYS
     Route: 048
     Dates: start: 2013

REACTIONS (6)
  - Superinfection [Unknown]
  - Pseudomonal sepsis [Unknown]
  - Multiple organ dysfunction syndrome [Unknown]
  - Leukopenia [Unknown]
  - Septic shock [Unknown]
  - Psoriasis [Recovering/Resolving]

NARRATIVE: CASE EVENT DATE: 20150314
